FAERS Safety Report 7698746-5 (Version None)
Quarter: 2011Q3

REPORT INFORMATION
  Report Type: 
  Country: None (occurrence: None)
  Receive Date: 20110819
  Receipt Date: 20110810
  Transmission Date: 20111222
  Serious: Yes (Hospitalization)
  Sender: FDA-Public Use
  Company Number: US-ACTELION-A-NJ2009-27029

PATIENT

DRUGS (1)
  1. TRACLEER [Suspect]
     Indication: PULMONARY ARTERIAL HYPERTENSION
     Dosage: 125 MG, BID
     Route: 048
     Dates: start: 20071012

REACTIONS (10)
  - CHRONIC OBSTRUCTIVE PULMONARY DISEASE [None]
  - COUGH [None]
  - CONDITION AGGRAVATED [None]
  - GASTRIC DISORDER [None]
  - HYPERCAPNIA [None]
  - ABDOMINAL PAIN UPPER [None]
  - HAEMANGIOMA [None]
  - GASTRITIS [None]
  - BRONCHITIS [None]
  - AORTIC ANEURYSM [None]
